FAERS Safety Report 7081948-9 (Version None)
Quarter: 2010Q4

REPORT INFORMATION
  Report Type: 
  Country: None (occurrence: None)
  Receive Date: 20101103
  Receipt Date: 20101028
  Transmission Date: 20110411
  Serious: Yes (Death, Other)
  Sender: FDA-Public Use
  Company Number: JP-PFIZER INC-2010081871

PATIENT
  Age: 48 Year
  Sex: Male

DRUGS (1)
  1. SUNITINIB MALATE [Suspect]
     Route: 048

REACTIONS (2)
  - DEATH [None]
  - PANCYTOPENIA [None]
